FAERS Safety Report 20429567 (Version 1)
Quarter: 2022Q1

REPORT INFORMATION
  Report Type: Report from Study
  Country: FR (occurrence: FR)
  Receive Date: 20220204
  Receipt Date: 20220204
  Transmission Date: 20220424
  Serious: Yes (Hospitalization)
  Sender: FDA-Public Use
  Company Number: FR-SERVIER-S19006259

PATIENT

DRUGS (5)
  1. ONCASPAR [Suspect]
     Active Substance: PEGASPARGASE
     Indication: Acute lymphocytic leukaemia
     Dosage: 1350 IU, ON D4
     Route: 042
     Dates: start: 20181109, end: 20181109
  2. DOXORUBICIN [Suspect]
     Active Substance: DOXORUBICIN
     Indication: Acute lymphocytic leukaemia
     Dosage: 32 MG, ON D1, D8, D15, D22
     Route: 042
     Dates: start: 20181106, end: 20181120
  3. VINCRISTINE [Suspect]
     Active Substance: VINCRISTINE
     Indication: Acute lymphocytic leukaemia
     Dosage: 1.6 MG, ON D1, D8, D15, D22
     Route: 042
     Dates: start: 20181106, end: 20181120
  4. METHOTREXATE [Suspect]
     Active Substance: METHOTREXATE
     Indication: Acute lymphocytic leukaemia
     Dosage: 15 MG, ON D4
     Route: 035
     Dates: start: 20181109
  5. DEXAMETHASONE [Suspect]
     Active Substance: DEXAMETHASONE
     Indication: Acute lymphocytic leukaemia
     Dosage: 10.5 MG QD FROM D1 TO D21
     Route: 048
     Dates: start: 20181106, end: 20181126

REACTIONS (5)
  - Acute respiratory distress syndrome [Recovered/Resolved]
  - Pneumonia toxoplasmal [Recovered/Resolved]
  - Respiratory distress [Recovered/Resolved]
  - Neuromyopathy [Recovered/Resolved]
  - Neuralgia [Recovering/Resolving]

NARRATIVE: CASE EVENT DATE: 20181125
